FAERS Safety Report 8069409-1 (Version None)
Quarter: 2012Q1

REPORT INFORMATION
  Report Type: 
  Country: None (occurrence: None)
  Receive Date: 20120125
  Receipt Date: 20120120
  Transmission Date: 20120608
  Serious: No
  Sender: FDA-Public Use
  Company Number: AU-JNJFOC-20120106319

PATIENT
  Sex: Female

DRUGS (1)
  1. GALANTAMINE HYDROBROMIDE [Suspect]
     Indication: PRODUCT USED FOR UNKNOWN INDICATION
     Route: 048

REACTIONS (3)
  - DRUG DOSE OMISSION [None]
  - TREATMENT NONCOMPLIANCE [None]
  - WRONG TECHNIQUE IN DRUG USAGE PROCESS [None]
